FAERS Safety Report 18538608 (Version 3)
Quarter: 2022Q2

REPORT INFORMATION
  Report Type: Spontaneous
  Country: JP (occurrence: JP)
  Receive Date: 20201124
  Receipt Date: 20220624
  Transmission Date: 20220721
  Serious: Yes (Other)
  Sender: FDA-Public Use
  Company Number: JP-VIIV HEALTHCARE ULC-JP2020JPN214773

PATIENT

DRUGS (1)
  1. ABACAVIR SULFATE\DOLUTEGRAVIR SODIUM\LAMIVUDINE [Suspect]
     Active Substance: ABACAVIR SULFATE\DOLUTEGRAVIR SODIUM\LAMIVUDINE
     Indication: HIV infection
     Dosage: 1 DF, QD
     Route: 048
     Dates: start: 201612

REACTIONS (3)
  - Gynaecomastia [Not Recovered/Not Resolved]
  - Breast swelling [Not Recovered/Not Resolved]
  - Breast pain [Unknown]

NARRATIVE: CASE EVENT DATE: 20170101
